FAERS Safety Report 6498953-3 (Version None)
Quarter: 2009Q4

REPORT INFORMATION
  Report Type: 
  Country: None (occurrence: None)
  Receive Date: 20091127
  Receipt Date: 20081215
  Transmission Date: 20100525
  Serious: Yes (Life-Threatening)
  Sender: FDA-Public Use
  Company Number: 282387

PATIENT
  Age: 63 Year

DRUGS (6)
  1. NOVOLOG [Suspect]
     Indication: TYPE 1 DIABETES MELLITUS
     Dosage: TID BASED ON DIET, SUBCUTANEOUS; TID BASED ON DIET, SUBCUTANEOUS
     Route: 058
  2. NOVOLOG [Suspect]
  3. LANTUS [Concomitant]
  4. AVAPRO [Concomitant]
  5. CRESTOR [Concomitant]
  6. PROTONIX [Concomitant]

REACTIONS (1)
  - HYPOGLYCAEMIC UNCONSCIOUSNESS [None]
